FAERS Safety Report 10174510 (Version 1)
Quarter: 2014Q2

REPORT INFORMATION
  Report Type: Spontaneous
  Country: US (occurrence: None)
  Receive Date: 20140416
  Receipt Date: 20140416
  Transmission Date: 20141212
  Serious: Yes (Other)
  Sender: FDA-Public Use
  Company Number: 163-POMAL-14014814

PATIENT
  Age: 72 Year
  Sex: Male
  Weight: 80.7 kg

DRUGS (5)
  1. POMALYST (POMALIDOMIDE) (4 MILLIGRAM, CAPSULES) [Suspect]
     Indication: PLASMA CELL MYELOMA
     Route: 048
     Dates: start: 20130329
  2. DOCUSATE SODIUM (DOCUSATE SODIUM) [Concomitant]
  3. NEXIUM (ESOMEPRAZOLE) [Concomitant]
  4. LOVENOX [Concomitant]
  5. DEXAMETHASONE (DEXAMETHASONE) [Concomitant]

REACTIONS (1)
  - Thrombosis [None]
